FAERS Safety Report 5892291-5 (Version None)
Quarter: 2008Q3

REPORT INFORMATION
  Report Type: 
  Country: None (occurrence: None)
  Receive Date: 20080919
  Receipt Date: 20080905
  Transmission Date: 20090109
  Serious: Yes (Other)
  Sender: FDA-Public Use
  Company Number: 237292J08USA

PATIENT
  Age: 55 Year
  Sex: Female

DRUGS (2)
  1. REBIF [Suspect]
     Indication: MULTIPLE SCLEROSIS
     Dosage: 44 MCG, 3 IN 1 WEEKS, SUBCUTANEOUS
     Route: 058
     Dates: start: 20080215, end: 20080701
  2. BACLOFEN [Concomitant]

REACTIONS (5)
  - ASTHENIA [None]
  - BLADDER PROLAPSE [None]
  - FATIGUE [None]
  - INJECTION SITE REACTION [None]
  - PAIN [None]
